FAERS Safety Report 12841520 (Version 5)
Quarter: 2017Q1

REPORT INFORMATION
  Report Type: Report from Study
  Country: US (occurrence: US)
  Receive Date: 20161012
  Receipt Date: 20170116
  Transmission Date: 20170428
  Serious: Yes (Hospitalization, Other)
  Sender: FDA-Public Use
  Company Number: US-JNJFOC-20160818405

PATIENT
  Age: 80 Year
  Sex: Male

DRUGS (21)
  1. LEVAQUIN [Concomitant]
     Active Substance: LEVOFLOXACIN
     Route: 048
  2. VITAMIN E NOS [Concomitant]
     Active Substance: .ALPHA.-TOCOPHEROL
  3. IMBRUVICA [Suspect]
     Active Substance: IBRUTINIB
     Indication: WALDENSTROM^S MACROGLOBULINAEMIA
     Route: 048
     Dates: start: 20160816
  4. LISINOPRIL. [Suspect]
     Active Substance: LISINOPRIL
     Indication: PRODUCT USED FOR UNKNOWN INDICATION
     Route: 065
  5. VITAMIN D [Concomitant]
     Active Substance: CHOLECALCIFEROL
     Route: 048
  6. ASPIRIN. [Concomitant]
     Active Substance: ASPIRIN
  7. XANAX [Concomitant]
     Active Substance: ALPRAZOLAM
     Route: 048
  8. VITAMIN C [Concomitant]
     Active Substance: ASCORBIC ACID
  9. TEMAZEPAM. [Concomitant]
     Active Substance: TEMAZEPAM
     Route: 048
  10. MAGNESIUM CITRATE. [Concomitant]
     Active Substance: MAGNESIUM CITRATE
  11. POTASSIUM GLUCONATE [Concomitant]
     Active Substance: POTASSIUM GLUCONATE
  12. OXYGEN. [Concomitant]
     Active Substance: OXYGEN
  13. DOXYCYCLINE. [Concomitant]
     Active Substance: DOXYCYCLINE
  14. AMLODIPINE BESYLATE. [Concomitant]
     Active Substance: AMLODIPINE BESYLATE
     Route: 048
  15. LOVASTATIN. [Concomitant]
     Active Substance: LOVASTATIN
     Route: 048
  16. NITROGLYCERIN. [Concomitant]
     Active Substance: NITROGLYCERIN
  17. ASPIRIN. [Concomitant]
     Active Substance: ASPIRIN
  18. ALBUTEROL. [Concomitant]
     Active Substance: ALBUTEROL
     Dosage: 2 PUUFS INHALED 4 TIME DAILY
  19. LOSARTAN POTASSIUM. [Concomitant]
     Active Substance: LOSARTAN POTASSIUM
     Route: 048
  20. POTASSIUM [Concomitant]
     Active Substance: POTASSIUM
  21. VITAMIN-A [Concomitant]
     Active Substance: VITAMIN A

REACTIONS (29)
  - Aspergillus infection [Recovering/Resolving]
  - Respiratory failure [Recovering/Resolving]
  - Pneumonia fungal [Recovering/Resolving]
  - Systemic inflammatory response syndrome [Recovering/Resolving]
  - Leukaemoid reaction [Recovering/Resolving]
  - Weight increased [Unknown]
  - Diarrhoea [Unknown]
  - Mouth haemorrhage [Unknown]
  - Tachycardia [Recovering/Resolving]
  - Tachypnoea [Recovering/Resolving]
  - Contusion [Not Recovered/Not Resolved]
  - Oxygen saturation decreased [Recovering/Resolving]
  - Hyponatraemia [Recovering/Resolving]
  - Back pain [Unknown]
  - Oedema peripheral [Unknown]
  - Gastrointestinal pain [Unknown]
  - Stomatitis [Not Recovered/Not Resolved]
  - Cough [Recovering/Resolving]
  - Dyspnoea [Recovering/Resolving]
  - Increased tendency to bruise [Unknown]
  - Pyrexia [Recovering/Resolving]
  - Haemoptysis [Unknown]
  - Sepsis [Recovering/Resolving]
  - Pulmonary oedema [Unknown]
  - Blood immunoglobulin M decreased [Unknown]
  - Oral mucosal blistering [Recovered/Resolved]
  - Ecchymosis [Unknown]
  - Platelet count decreased [Recovering/Resolving]
  - Anaemia [Unknown]

NARRATIVE: CASE EVENT DATE: 20160816
